FAERS Safety Report 9114738 (Version 1)
Quarter: 2013Q1

REPORT INFORMATION
  Report Type: Spontaneous
  Country: NL (occurrence: NL)
  Receive Date: 20130208
  Receipt Date: 20130208
  Transmission Date: 20140127
  Serious: Yes (Other)
  Sender: FDA-Public Use
  Company Number: NL-BAYER-2013-014880

PATIENT
  Sex: Male

DRUGS (2)
  1. BETAFERON [Suspect]
     Indication: SECONDARY PROGRESSIVE MULTIPLE SCLEROSIS
     Dosage: 8 MIU, QOD
     Dates: start: 1995
  2. BACLOFEN [Concomitant]
     Dosage: 80 MG, QD

REACTIONS (4)
  - Hypothermia [None]
  - Motor dysfunction [None]
  - Amnesia [None]
  - Loss of consciousness [None]
